FAERS Safety Report 24874841 (Version 1)
Quarter: 2025Q1

REPORT INFORMATION
  Report Type: Spontaneous
  Country: GB (occurrence: GB)
  Receive Date: 20250122
  Receipt Date: 20250122
  Transmission Date: 20250408
  Serious: Yes (Hospitalization, Disabling, Other)
  Sender: MYLAN
  Company Number: None

PATIENT
  Age: 33 Year
  Sex: Female
  Weight: 102 kg

DRUGS (2)
  1. VENLAFAXINE [Suspect]
     Active Substance: VENLAFAXINE HYDROCHLORIDE
     Indication: Depression
     Route: 065
  2. VENLAFAXINE [Suspect]
     Active Substance: VENLAFAXINE HYDROCHLORIDE
     Route: 065

REACTIONS (9)
  - Menstruation delayed [Recovering/Resolving]
  - Menstruation irregular [Recovering/Resolving]
  - Pyrexia [Recovering/Resolving]
  - Premenstrual syndrome [Recovering/Resolving]
  - Heavy menstrual bleeding [Recovering/Resolving]
  - Nausea [Recovering/Resolving]
  - Weight increased [Not Recovered/Not Resolved]
  - Vomiting [Recovering/Resolving]
  - Medication error [Unknown]

NARRATIVE: CASE EVENT DATE: 20240115
